FAERS Safety Report 4634353-6 (Version None)
Quarter: 2005Q2

REPORT INFORMATION
  Report Type: 
  Country: None (occurrence: None)
  Receive Date: 20050411
  Receipt Date: 20050329
  Transmission Date: 20051028
  Serious: Yes (Hospitalization, Other)
  Sender: FDA-Public Use
  Company Number: 2005043791

PATIENT
  Age: 74 Year
  Sex: Female
  Weight: 70 kg

DRUGS (14)
  1. ZYRTEC [Suspect]
     Indication: RHINITIS ALLERGIC
     Dosage: 10 MG (10 MG, 1 IN 1 D), ORAL
     Route: 048
     Dates: start: 20041228, end: 20050302
  2. CLONAZEPAM [Suspect]
     Indication: DEPRESSION
     Dosage: 0.5 MG (0.5 MG, 1 IN 1D), ORAL
     Route: 048
     Dates: start: 20031202, end: 20050302
  3. TEPRENONE (TERPRENONE) [Suspect]
     Indication: ILL-DEFINED DISORDER
     Dosage: 150 MG (1 IN 1 D), ORAL
     Route: 048
     Dates: start: 20000605, end: 20050302
  4. MAGNESIUM OXIE (MAGNESIUM OXIDE) [Suspect]
     Indication: ILL-DEFINED DISORDER
     Dosage: 750 MG (1 IN 1 D), ORAL
     Route: 048
     Dates: start: 20000605, end: 20050302
  5. ALL OTHER THERAPEUTIC PRODUCTS (ALL OTHER THERAPEUTIC PRODUCTS) [Suspect]
     Indication: ILL-DEFINED DISORDER
     Dosage: 7.5 GRAM (1 IN 1 D), ORAL
     Route: 048
     Dates: start: 20040623, end: 20050302
  6. BETHANECHOL CHLORIDE (BETHANECHOL CHLORIDE) [Suspect]
     Indication: ILL-DEFINED DISORDER
     Dosage: 1 GRAM (1 IN 1 D), ORAL
     Route: 048
     Dates: start: 20041130, end: 20050302
  7. NITRAZEPAM [Concomitant]
  8. ETIZOLAM (ETIZOLAM) [Concomitant]
  9. FLUNITRAZEPAM (FLUNITRAZEPAM) [Concomitant]
  10. ALPRAZOLAM [Concomitant]
  11. SODIUM PICOSULFATE (SODIUM PICOSULFATE) [Concomitant]
  12. SENNA LEAF (SENNA LEFA) [Concomitant]
  13. PROMETHAZINE HYDROCHLORIDE TAB [Concomitant]
  14. VOGLIBOSE (VOGLIBOSE) [Concomitant]

REACTIONS (4)
  - ADVERSE DRUG REACTION [None]
  - CEREBRAL INFARCTION [None]
  - INCONTINENCE [None]
  - PANCYTOPENIA [None]
